FAERS Safety Report 11438653 (Version 1)
Quarter: 2015Q3

REPORT INFORMATION
  Report Type: Spontaneous
  Country: US (occurrence: US)
  Receive Date: 20150901
  Receipt Date: 20150901
  Transmission Date: 20151125
  Serious: No
  Sender: FDA-Public Use
  Company Number: US-ROCHE-1147052

PATIENT
  Sex: Male
  Weight: 112.59 kg

DRUGS (3)
  1. RIBASPHERE [Suspect]
     Active Substance: RIBAVIRIN
     Indication: PRODUCT USED FOR UNKNOWN INDICATION
     Route: 065
  2. VICTRELIS [Concomitant]
     Active Substance: BOCEPREVIR
     Route: 065
  3. PEGASYS [Suspect]
     Active Substance: PEGINTERFERON ALFA-2A
     Indication: PRODUCT USED FOR UNKNOWN INDICATION
     Route: 065

REACTIONS (7)
  - Eye swelling [Unknown]
  - Weight increased [Unknown]
  - Fluid retention [Unknown]
  - Leukopenia [Unknown]
  - Rash [Unknown]
  - Swelling face [Unknown]
  - Swelling [Unknown]
